FAERS Safety Report 10910540 (Version 1)
Quarter: 2015Q1

REPORT INFORMATION
  Report Type: Spontaneous
  Country: US (occurrence: US)
  Receive Date: 20150312
  Receipt Date: 20150312
  Transmission Date: 20150721
  Serious: No
  Sender: FDA-Public Use
  Company Number: US-SA-2014SA132253

PATIENT
  Age: 87 Year
  Sex: Female

DRUGS (1)
  1. NASACORT ALLERGY 24HR [Suspect]
     Active Substance: TRIAMCINOLONE ACETONIDE
     Indication: MULTIPLE ALLERGIES
     Dosage: DOSAGE : 2 SPRAYS?FREQUENCY : EACH NOSTRIL QD?THERAPY START DATE: 2WEEKS AGO
     Route: 045

REACTIONS (1)
  - Nausea [Not Recovered/Not Resolved]
